FAERS Safety Report 8887518 (Version 1)
Quarter: 2012Q4

REPORT INFORMATION
  Report Type: Spontaneous
  Country: US (occurrence: None)
  Receive Date: 20121101
  Receipt Date: 20121101
  Transmission Date: 20130627
  Serious: Yes (Hospitalization)
  Sender: FDA-Public Use
  Company Number: None

PATIENT
  Age: 79 Year
  Sex: Female
  Weight: 76.4 kg

DRUGS (22)
  1. DILAUDID [Suspect]
     Indication: PAIN
     Dosage: 2MG Q6HR PRN PO
     Route: 048
  2. ATIVAN [Suspect]
     Indication: ANXIETY
     Dosage: 1MG BID PRN PO
     Route: 048
  3. ZOCOR [Concomitant]
  4. PRADAXA [Concomitant]
  5. FISH OIL [Concomitant]
  6. BAYER ASA [Concomitant]
  7. TOPROL XL [Concomitant]
  8. CENTRUM [Concomitant]
  9. COZAAR [Concomitant]
  10. CALTRATE [Concomitant]
  11. VIT D [Concomitant]
  12. DILAUDID [Suspect]
     Indication: PAIN
     Dosage: 2MG Q6HR PRN PO
     Route: 048
  13. ATIVAN [Suspect]
     Indication: ANXIETY
     Dosage: 1MG BID PRN PO
     Route: 048
  14. ZOCOR [Concomitant]
  15. PRADAXA [Concomitant]
  16. FISH OIL [Concomitant]
  17. BAYER ASA [Concomitant]
  18. TOPROL XL [Concomitant]
  19. CENTRUM [Concomitant]
  20. COZAAR [Concomitant]
  21. CALTRATE [Concomitant]
  22. VIT D [Concomitant]

REACTIONS (3)
  - Sedation [None]
  - Unresponsive to stimuli [None]
  - Somnolence [None]
